FAERS Safety Report 13342744 (Version 1)
Quarter: 2017Q1

REPORT INFORMATION
  Report Type: Spontaneous
  Country: TW (occurrence: TW)
  Receive Date: 20170316
  Receipt Date: 20170316
  Transmission Date: 20170428
  Serious: Yes (Death, Other)
  Sender: FDA-Public Use
  Company Number: TW-JNJFOC-20170308811

PATIENT
  Sex: Male

DRUGS (3)
  1. PREDNISOLONE. [Suspect]
     Active Substance: PREDNISOLONE
     Indication: PROSTATE CANCER METASTATIC
     Route: 065
  2. PREDNISOLONE. [Suspect]
     Active Substance: PREDNISOLONE
     Indication: PROSTATE CANCER METASTATIC
     Route: 065
  3. ABIRATERONE ACETATE [Suspect]
     Active Substance: ABIRATERONE ACETATE
     Indication: PROSTATE CANCER METASTATIC
     Route: 048

REACTIONS (10)
  - Diarrhoea [Unknown]
  - Stasis dermatitis [Unknown]
  - Hypokalaemia [Unknown]
  - Abdominal discomfort [Unknown]
  - Hyperkalaemia [Fatal]
  - Liver function test increased [Unknown]
  - Fatigue [Unknown]
  - Vertigo [Unknown]
  - Oedema peripheral [Unknown]
  - Swelling face [Unknown]
